FAERS Safety Report 9553314 (Version 2)
Quarter: 2013Q4

REPORT INFORMATION
  Report Type: Report from Study
  Country: US (occurrence: US)
  Receive Date: 20130925
  Receipt Date: 20131014
  Transmission Date: 20140711
  Serious: Yes (Other)
  Sender: FDA-Public Use
  Company Number: US-SANOFI-AVENTIS-2013SA093190

PATIENT
  Age: 59 Year
  Sex: Male
  Weight: 94 kg

DRUGS (4)
  1. AUBAGIO [Suspect]
     Indication: MULTIPLE SCLEROSIS
     Route: 048
     Dates: start: 20130128
  2. TESTOSTERONE [Concomitant]
     Route: 065
     Dates: start: 2010
  3. OXYCODONE [Concomitant]
     Indication: PAIN
     Route: 065
     Dates: start: 2003
  4. ALPRAZOLAM [Concomitant]
     Indication: ANXIETY
     Route: 065
     Dates: start: 1995

REACTIONS (2)
  - Arthropathy [Unknown]
  - Weight decreased [Recovered/Resolved]
